FAERS Safety Report 11223415 (Version 2)
Quarter: 2016Q2

REPORT INFORMATION
  Report Type: Report from Study
  Country: BR (occurrence: BR)
  Receive Date: 20150627
  Receipt Date: 20160610
  Transmission Date: 20160815
  Serious: Yes (Hospitalization)
  Sender: FDA-Public Use
  Company Number: PHHY2015BR074608

PATIENT
  Sex: Female
  Weight: 98 kg

DRUGS (3)
  1. RIVOTRIL [Suspect]
     Active Substance: CLONAZEPAM
     Indication: PRODUCT USED FOR UNKNOWN INDICATION
     Dosage: 0.5 OT, UNK
     Route: 065
  2. DEPURA [Suspect]
     Active Substance: CHOLECALCIFEROL
     Indication: PRODUCT USED FOR UNKNOWN INDICATION
     Dosage: 10 DRP, QD
     Route: 065
  3. ACLASTA [Suspect]
     Active Substance: ZOLEDRONIC ACID
     Indication: OSTEOPOROSIS
     Dosage: 5 MG, Q12MO
     Route: 042
     Dates: start: 2014

REACTIONS (9)
  - Gastrointestinal motility disorder [Unknown]
  - Pelvic pain [Recovered/Resolved]
  - Arthropathy [Unknown]
  - Muscle fatigue [Recovered/Resolved]
  - Bone pain [Recovered/Resolved]
  - Dysstasia [Recovered/Resolved]
  - Vomiting [Unknown]
  - Urinary tract infection [Unknown]
  - Cerebrovascular accident [Recovered/Resolved]
